APPROVED DRUG PRODUCT: RANITIDINE HYDROCHLORIDE
Active Ingredient: RANITIDINE HYDROCHLORIDE
Strength: EQ 300MG BASE
Dosage Form/Route: TABLET;ORAL
Application: A077824 | Product #002
Applicant: AMNEAL PHARMACEUTICALS NY LLC
Approved: Oct 13, 2006 | RLD: No | RS: No | Type: DISCN